FAERS Safety Report 8997031 (Version 2)
Quarter: 2013Q2

REPORT INFORMATION
  Report Type: Spontaneous
  Country: GB (occurrence: GB)
  Receive Date: 20130104
  Receipt Date: 20130627
  Transmission Date: 20140414
  Serious: Yes (Other)
  Sender: FDA-Public Use
  Company Number: GB-PFIZER INC-2013000806

PATIENT
  Age: 57 Year
  Sex: Female
  Weight: 63.5 kg

DRUGS (1)
  1. AMLODIPINE BESILATE [Suspect]
     Route: 048
     Dates: start: 20121129, end: 20121219

REACTIONS (5)
  - Local swelling [Not Recovered/Not Resolved]
  - Joint swelling [Not Recovered/Not Resolved]
  - Fear [Not Recovered/Not Resolved]
  - Nervousness [Not Recovered/Not Resolved]
  - Stress [Not Recovered/Not Resolved]
